FAERS Safety Report 6379114-5 (Version None)
Quarter: 2009Q3

REPORT INFORMATION
  Report Type: 
  Country: None (occurrence: None)
  Receive Date: 20090923
  Receipt Date: 20090923
  Transmission Date: 20100115
  Serious: Yes (Life-Threatening, Hospitalization)
  Sender: FDA-Public Use
  Company Number: None

PATIENT
  Age: 47 Year
  Sex: Male
  Weight: 87.5 kg

DRUGS (8)
  1. ACETAMINOPHEN [Suspect]
     Indication: BACK PAIN
     Dates: start: 20040521
  2. QUETIAPINE FUMARATE [Concomitant]
  3. LAMOTRIGINE [Concomitant]
  4. CLONIDINE [Concomitant]
  5. METOPROLOL [Concomitant]
  6. LISINOPRIL [Concomitant]
  7. HYDROCHLOROTHIAZIDE [Concomitant]
  8. OXYCODONE [Concomitant]

REACTIONS (6)
  - DRUG SCREEN POSITIVE [None]
  - HYPERTENSION [None]
  - LOSS OF CONSCIOUSNESS [None]
  - OVERDOSE [None]
  - TACHYCARDIA [None]
  - URINE ALCOHOL TEST POSITIVE [None]
